FAERS Safety Report 9764594 (Version 1)
Quarter: 2013Q4

REPORT INFORMATION
  Report Type: Spontaneous
  Country: US (occurrence: US)
  Receive Date: 20131217
  Receipt Date: 20131217
  Transmission Date: 20140711
  Serious: No
  Sender: FDA-Public Use
  Company Number: US-US-EMD SERONO, INC.-7256229

PATIENT
  Sex: Female

DRUGS (6)
  1. REBIF [Suspect]
     Indication: PRODUCT USED FOR UNKNOWN INDICATION
     Route: 058
     Dates: start: 20131024
  2. LIPITOR [Concomitant]
  3. DIOVAN                             /01319601/ [Concomitant]
  4. DICYCLOMINE                        /00068601/ [Concomitant]
  5. ASPIRIN                            /00002701/ [Concomitant]
  6. OMEPRAZOLE [Concomitant]

REACTIONS (2)
  - Local swelling [Not Recovered/Not Resolved]
  - Pruritus [Not Recovered/Not Resolved]
